FAERS Safety Report 8559970-2 (Version None)
Quarter: 2012Q3

REPORT INFORMATION
  Report Type: 
  Country: None (occurrence: None)
  Receive Date: 20120802
  Receipt Date: 20120720
  Transmission Date: 20120928
  Serious: Yes (Hospitalization, Other)
  Sender: FDA-Public Use
  Company Number: US-009507513-1102USA01702

PATIENT

DRUGS (6)
  1. FOSAMAX [Suspect]
     Indication: OSTEOPOROSIS PROPHYLAXIS
     Dosage: 70 MG, QW
     Route: 048
     Dates: end: 20040529
  2. TOPROL-XL [Concomitant]
     Indication: HYPERTENSION
     Dates: start: 20040301
  3. FOSAMAX [Suspect]
     Indication: OSTEOPENIA
     Dosage: 10 MG, QD
     Route: 048
     Dates: start: 19970210, end: 20040801
  4. FOSAMAX PLUS D [Suspect]
     Indication: OSTEOPENIA
     Dosage: 70/2800
     Route: 048
     Dates: start: 20060416, end: 20080611
  5. FOSAMAX [Suspect]
     Dosage: 70 MG, QW
     Route: 048
     Dates: start: 20080620, end: 20080903
  6. FOSAMAX [Suspect]
     Indication: OSTEOPOROSIS
     Dosage: 70 MG, QW
     Route: 048
     Dates: start: 20081002, end: 20100228

REACTIONS (19)
  - HIP FRACTURE [None]
  - DYSPEPSIA [None]
  - FEMUR FRACTURE [None]
  - TOOTH DISORDER [None]
  - SPINAL OSTEOARTHRITIS [None]
  - CATARACT [None]
  - OEDEMA [None]
  - NECROSIS [None]
  - HYPERLIPIDAEMIA [None]
  - CYSTOCELE [None]
  - CERUMEN IMPACTION [None]
  - URINARY RETENTION [None]
  - HYPERGLYCAEMIA [None]
  - IRON DEFICIENCY ANAEMIA [None]
  - FALL [None]
  - SURGERY [None]
  - NORMOCHROMIC NORMOCYTIC ANAEMIA [None]
  - COLONIC POLYP [None]
  - BREAST DISORDER [None]
